FAERS Safety Report 8095026 (Version 2)
Quarter: 2013Q2

REPORT INFORMATION
  Report Type: Spontaneous
  Country: CA (occurrence: CA)
  Receive Date: 20110817
  Receipt Date: 20130510
  Transmission Date: 20140414
  Serious: Yes (Other)
  Sender: FDA-Public Use
  Company Number: CA-BAYER-2011-073726

PATIENT
  Age: 42 Year
  Sex: 0
  Weight: 81.63 kg

DRUGS (2)
  1. MAGNEVIST [Suspect]
     Indication: NUCLEAR MAGNETIC RESONANCE IMAGING ABDOMINAL
     Dosage: 20 ML, ONCE
     Route: 042
     Dates: start: 20110815, end: 20110815
  2. MAGNEVIST [Suspect]
     Indication: DIAGNOSTIC PROCEDURE

REACTIONS (1)
  - Dysphagia [Recovered/Resolved]
